FAERS Safety Report 10692123 (Version 2)
Quarter: 2015Q1

REPORT INFORMATION
  Report Type: Spontaneous
  Country: TR (occurrence: TR)
  Receive Date: 20150106
  Receipt Date: 20150106
  Transmission Date: 20150720
  Serious: Yes (Hospitalization)
  Sender: FDA-Public Use
  Company Number: TR-ACCORD-027945

PATIENT
  Age: 18 Year
  Sex: Female

DRUGS (2)
  1. SERTRALINE [Suspect]
     Active Substance: SERTRALINE HYDROCHLORIDE
     Indication: PRODUCT USED FOR UNKNOWN INDICATION
  2. LAMOTRIGINE. [Suspect]
     Active Substance: LAMOTRIGINE
     Indication: PRODUCT USED FOR UNKNOWN INDICATION

REACTIONS (7)
  - Agitation [Recovering/Resolving]
  - Aphasia [Recovering/Resolving]
  - Dysarthria [Recovering/Resolving]
  - Disorientation [Recovered/Resolved]
  - Myoclonus [Recovering/Resolving]
  - Nystagmus [Recovering/Resolving]
  - Toxicity to various agents [Recovering/Resolving]
